FAERS Safety Report 13345267 (Version 1)
Quarter: 2017Q1

REPORT INFORMATION
  Report Type: Spontaneous
  Country: US (occurrence: US)
  Receive Date: 20170317
  Receipt Date: 20170317
  Transmission Date: 20170428
  Serious: No
  Sender: FDA-Public Use
  Company Number: US-ALKABELLO-2017AA000980

PATIENT
  Sex: Male

DRUGS (1)
  1. GRASTEK [Suspect]
     Active Substance: PHLEUM PRATENSE POLLEN

REACTIONS (2)
  - Swollen tongue [Unknown]
  - Chest pain [Unknown]
